FAERS Safety Report 13545325 (Version 1)
Quarter: 2017Q2

REPORT INFORMATION
  Report Type: Spontaneous
  Country: US (occurrence: US)
  Receive Date: 20170513
  Receipt Date: 20170513
  Transmission Date: 20170830
  Serious: Yes (Other)
  Sender: FDA-Public Use
  Company Number: None

PATIENT
  Age: 34 Year
  Sex: Male
  Weight: 76.5 kg

DRUGS (2)
  1. CREST PRO-HEALTH (CETYLPYRIDINIUM CHLORIDE) [Suspect]
     Active Substance: CETYLPYRIDINIUM CHLORIDE
     Indication: PROPHYLAXIS
  2. CREST PRO-HEALTH (CETYLPYRIDINIUM CHLORIDE) [Suspect]
     Active Substance: CETYLPYRIDINIUM CHLORIDE
     Indication: DENTAL CARIES

REACTIONS (1)
  - Tooth discolouration [None]

NARRATIVE: CASE EVENT DATE: 20170513
